FAERS Safety Report 5954117-0 (Version None)
Quarter: 2008Q4

REPORT INFORMATION
  Report Type: 
  Country: None (occurrence: None)
  Receive Date: 20081117
  Receipt Date: 20081110
  Transmission Date: 20090506
  Serious: Yes (Other)
  Sender: FDA-Public Use
  Company Number: IN-RANBAXY-2008RR-18236

PATIENT
  Age: 51 Year
  Sex: Female

DRUGS (2)
  1. METFORMIN HCL [Suspect]
     Indication: TYPE 2 DIABETES MELLITUS
     Dosage: 850 MG, BID
  2. METFORMIN HCL [Suspect]
     Dosage: 500 MG, QD

REACTIONS (1)
  - HAEMOLYTIC ANAEMIA [None]
